FAERS Safety Report 14475254 (Version 2)
Quarter: 2018Q1

REPORT INFORMATION
  Report Type: Spontaneous
  Country: US (occurrence: US)
  Receive Date: 20180201
  Receipt Date: 20180309
  Transmission Date: 20180509
  Serious: Yes (Death, Hospitalization, Other)
  Sender: FDA-Public Use
  Company Number: US-009507513-1801USA013576

PATIENT
  Sex: Female
  Weight: 73.02 kg

DRUGS (2)
  1. JANUVIA [Suspect]
     Active Substance: SITAGLIPTIN PHOSPHATE
     Indication: PRODUCT USED FOR UNKNOWN INDICATION
     Dosage: 50 MG, QD
     Route: 048
     Dates: start: 20140107, end: 20140724
  2. JANUVIA [Suspect]
     Active Substance: SITAGLIPTIN PHOSPHATE
     Indication: PRODUCT USED FOR UNKNOWN INDICATION
     Dosage: 25 MG, QD WITH LUNCH
     Route: 065
     Dates: start: 20120323, end: 20140106

REACTIONS (29)
  - Neck pain [Unknown]
  - Haematemesis [Unknown]
  - Hyperlipidaemia [Unknown]
  - Type 1 diabetes mellitus [Unknown]
  - Abdominal pain upper [Unknown]
  - Tonsillectomy [Unknown]
  - Nephrolithiasis [Unknown]
  - Constipation [Recovering/Resolving]
  - Procedural hypotension [Recovered/Resolved]
  - Dyspepsia [Unknown]
  - Nausea [Unknown]
  - Hypertension [Unknown]
  - Osteoarthritis [Unknown]
  - Renal cyst [Unknown]
  - Death [Fatal]
  - Lymphadenopathy [Unknown]
  - Depression [Unknown]
  - Pancreatic carcinoma metastatic [Not Recovered/Not Resolved]
  - Metastases to liver [Unknown]
  - Vomiting [Recovering/Resolving]
  - Osteopenia [Unknown]
  - Aortic arteriosclerosis [Unknown]
  - Metastases to lung [Unknown]
  - Abnormal loss of weight [Not Recovered/Not Resolved]
  - Neutropenia [Not Recovered/Not Resolved]
  - Leukopenia [Unknown]
  - Hepatic steatosis [Unknown]
  - Abdominal pain upper [Unknown]
  - Large intestine polyp [Unknown]

NARRATIVE: CASE EVENT DATE: 201312
